FAERS Safety Report 6097360-5 (Version None)
Quarter: 2009Q1

REPORT INFORMATION
  Report Type: 
  Country: None (occurrence: None)
  Receive Date: 20090227
  Receipt Date: 20081211
  Transmission Date: 20090719
  Serious: No
  Sender: FDA-Public Use
  Company Number: A0676042A

PATIENT
  Age: 49 Year
  Sex: Female
  Weight: 45.9 kg

DRUGS (8)
  1. IMITREX [Suspect]
     Indication: MIGRAINE
     Dosage: 6MGML VARIABLE DOSE
     Route: 058
  2. IMITREX TABLETS [Concomitant]
     Indication: MIGRAINE
     Dosage: 25MG AS REQUIRED
     Route: 048
     Dates: start: 19950101
  3. EXCEDRIN (MIGRAINE) [Concomitant]
  4. NAPROXEN SODIUM [Concomitant]
  5. IBUPROFEN [Concomitant]
  6. ICE PACK [Concomitant]
  7. CAFFEINE [Concomitant]
  8. COFFEE [Concomitant]

REACTIONS (13)
  - CONTUSION [None]
  - DIZZINESS [None]
  - DRUG ADMINISTRATION ERROR [None]
  - DRUG EFFECT DECREASED [None]
  - HYPOAESTHESIA [None]
  - INJECTION SITE ERYTHEMA [None]
  - INJECTION SITE HAEMORRHAGE [None]
  - INJECTION SITE IRRITATION [None]
  - INJECTION SITE REACTION [None]
  - INJECTION SITE SWELLING [None]
  - INJECTION SITE WARMTH [None]
  - NAUSEA [None]
  - PRODUCT QUALITY ISSUE [None]
